FAERS Safety Report 8477923-X (Version None)
Quarter: 2012Q2

REPORT INFORMATION
  Report Type: 
  Country: None (occurrence: None)
  Receive Date: 20120629
  Receipt Date: 20120621
  Transmission Date: 20120825
  Serious: Yes (Hospitalization)
  Sender: FDA-Public Use
  Company Number: JP-PFIZER INC-2012137097

PATIENT
  Age: 88 Year
  Sex: Female
  Weight: 46 kg

DRUGS (9)
  1. FAMOTIDINE [Concomitant]
     Indication: HAEMORRHAGE PROPHYLAXIS
     Dosage: 10 MG, 1X/DAY
     Route: 041
     Dates: start: 20120404, end: 20120416
  2. SILVINOL [Concomitant]
     Indication: ANGINA PECTORIS
     Dosage: 15 MG/DAY
     Route: 048
     Dates: start: 20120413
  3. EQUA [Concomitant]
     Indication: TYPE 2 DIABETES MELLITUS
     Dosage: 100 MG, 1X/DAY
     Route: 048
     Dates: start: 20120413
  4. FUROSEMIDE [Concomitant]
     Indication: CARDIAC FAILURE CHRONIC
     Dosage: 10 MG/DAY
     Route: 041
     Dates: start: 20120407, end: 20120413
  5. ZOSYN [Suspect]
     Indication: PNEUMONIA
     Dosage: 9 G, UNK
     Route: 041
     Dates: start: 20120403, end: 20120404
  6. ZOSYN [Suspect]
     Indication: URINARY TRACT INFECTION
     Dosage: 13.5 G, UNK
     Route: 041
     Dates: start: 20120405, end: 20120417
  7. DIART [Concomitant]
     Indication: CARDIAC FAILURE CHRONIC
     Dosage: 30 MG, 1X/DAY
     Route: 048
     Dates: start: 20120413
  8. NICORANDIL [Concomitant]
     Dosage: 15 MG, 1X/DAY
     Route: 048
     Dates: start: 20120412
  9. LACB R [Concomitant]
     Indication: PROPHYLAXIS AGAINST DIARRHOEA
     Dosage: 3 G/ DAY
     Route: 048
     Dates: start: 20120412, end: 20120418

REACTIONS (1)
  - HEPATIC FUNCTION ABNORMAL [None]
